FAERS Safety Report 9442347 (Version 1)
Quarter: 2013Q3

REPORT INFORMATION
  Report Type: Spontaneous
  Country: US (occurrence: US)
  Receive Date: 20130806
  Receipt Date: 20130806
  Transmission Date: 20140515
  Serious: No
  Sender: FDA-Public Use
  Company Number: US-GLAXOSMITHKLINE-A1009341A

PATIENT
  Sex: Female

DRUGS (13)
  1. ADVAIR [Suspect]
     Indication: BRONCHIECTASIS
     Dosage: 2PUFF TWICE PER DAY
     Route: 055
     Dates: start: 2008
  2. ADVAIR [Suspect]
     Indication: MYCOBACTERIUM AVIUM COMPLEX INFECTION
     Dosage: 1PUFF TWICE PER DAY
     Route: 055
     Dates: start: 2003, end: 2008
  3. ALBUTEROL NEBULIZED [Concomitant]
  4. PRO-AIR [Concomitant]
  5. SIMVASTATIN [Concomitant]
  6. UNKNOWN DRUG [Concomitant]
  7. FLUTICASONE NASAL SPRAY [Concomitant]
  8. DOXYCYCLINE [Concomitant]
  9. FAMOTIDINE [Concomitant]
  10. BABY ASPIRIN [Concomitant]
  11. VITAMINS [Concomitant]
  12. CALCIUM [Concomitant]
  13. FISH OIL [Concomitant]

REACTIONS (3)
  - Dysphonia [Not Recovered/Not Resolved]
  - Dyspnoea [Unknown]
  - Dysphonia [Unknown]
